FAERS Safety Report 26121636 (Version 1)
Quarter: 2025Q4

REPORT INFORMATION
  Report Type: Spontaneous
  Country: US (occurrence: None)
  Receive Date: 20251203
  Receipt Date: 20251203
  Transmission Date: 20260118
  Serious: Yes (Other)
  Sender: FDA-CTU
  Company Number: None

PATIENT
  Age: 66 Year
  Sex: Female
  Weight: 67.5 kg

DRUGS (3)
  1. STELARA [Suspect]
     Active Substance: USTEKINUMAB
     Route: 042
  2. Synthyroid 88mcg [Concomitant]
  3. BUDESONIDE [Concomitant]
     Active Substance: BUDESONIDE

REACTIONS (7)
  - Anosmia [None]
  - Ageusia [None]
  - Food poisoning [None]
  - Quality of life decreased [None]
  - Frustration tolerance decreased [None]
  - Sinus disorder [None]
  - Guillain-Barre syndrome [None]

NARRATIVE: CASE EVENT DATE: 20240201
